FAERS Safety Report 23108290 (Version 2)
Quarter: 2023Q4

REPORT INFORMATION
  Report Type: Spontaneous
  Country: IL (occurrence: IL)
  Receive Date: 20231026
  Receipt Date: 20231110
  Transmission Date: 20240110
  Serious: Yes (Death, Hospitalization, Other)
  Sender: FDA-Public Use
  Company Number: IL-SA-SAC20231025000498

PATIENT
  Age: 70 Year
  Sex: Male

DRUGS (4)
  1. REZUROCK [Suspect]
     Active Substance: BELUMOSUDIL
     Dosage: UNK
     Route: 065
     Dates: start: 20230926
  2. TENOFOVIR [Concomitant]
     Active Substance: TENOFOVIR
     Dates: start: 20220621
  3. NOXAFIL [Concomitant]
     Active Substance: POSACONAZOLE
  4. RUXOLITINIB [Concomitant]
     Active Substance: RUXOLITINIB
     Dosage: 5MG, BID
     Dates: start: 20230714

REACTIONS (7)
  - Acute respiratory failure [Fatal]
  - Chronic obstructive pulmonary disease [Fatal]
  - FEV1/FVC ratio decreased [Unknown]
  - Haemoglobin decreased [Unknown]
  - Pruritus [Unknown]
  - Pituitary-dependent Cushing^s syndrome [Unknown]
  - Sensation of foreign body [Unknown]
